FAERS Safety Report 8348163-X (Version None)
Quarter: 2012Q2

REPORT INFORMATION
  Report Type: 
  Country: None (occurrence: None)
  Receive Date: 20120509
  Receipt Date: 20100711
  Transmission Date: 20120825
  Serious: No
  Sender: FDA-Public Use
  Company Number: US-TEVA-2010003737

PATIENT
  Sex: Female
  Weight: 118.04 kg

DRUGS (5)
  1. NUVIGIL [Suspect]
     Dosage: 150 MILLIGRAM;
     Route: 048
     Dates: start: 20100401, end: 20100501
  2. NUVIGIL [Suspect]
     Dosage: 250 MILLIGRAM;
     Route: 048
     Dates: start: 20100501, end: 20100703
  3. NUVIGIL [Suspect]
     Indication: CATAPLEXY
     Dosage: 100 MILLIGRAM;
     Route: 048
     Dates: start: 20100301, end: 20100401
  4. SERTRALINE HYDROCHLORIDE [Concomitant]
     Indication: CATAPLEXY
     Dates: start: 20100101
  5. NUVIGIL [Suspect]
     Indication: NARCOLEPSY
     Dosage: 50 MILLIGRAM;
     Route: 048
     Dates: start: 20100201, end: 20100301

REACTIONS (3)
  - INSOMNIA [None]
  - DRUG INEFFECTIVE [None]
  - VERTIGO [None]
